FAERS Safety Report 6724125-0 (Version None)
Quarter: 2010Q2

REPORT INFORMATION
  Report Type: 
  Country: None (occurrence: None)
  Receive Date: 20100513
  Receipt Date: 20100504
  Transmission Date: 20101027
  Serious: Yes (Other)
  Sender: FDA-Public Use
  Company Number: US-ROCHE-702256

PATIENT
  Sex: Female

DRUGS (4)
  1. BONIVA [Suspect]
     Indication: DRUG USE FOR UNKNOWN INDICATION
     Route: 065
  2. SYNTHROID [Concomitant]
  3. TYLENOL-500 [Concomitant]
  4. NEXIUM [Concomitant]

REACTIONS (1)
  - DYSPNOEA [None]
